FAERS Safety Report 8919332 (Version 1)
Quarter: 2012Q4

REPORT INFORMATION
  Report Type: 
  Country: JP (occurrence: JP)
  Receive Date: 20121121
  Receipt Date: 20121121
  Transmission Date: 20130627
  Serious: Yes (Hospitalization)
  Sender: FDA-Public Use
  Company Number: JP-NAPPMUNDI-GBR-2012-0012146

PATIENT
  Age: 78 Year
  Sex: Female

DRUGS (2)
  1. BUPRENORPHINE TRANSDERMAL SYSTEM 5 MG [Suspect]
     Indication: POSTOPERATIVE ANALGESIA
     Dosage: 5 mcg, q1h
     Route: 062
     Dates: start: 20121029, end: 20121108
  2. NOVAMIN                            /00013301/ [Concomitant]
     Indication: NAUSEA
     Dosage: 10 mg, daily
     Route: 048
     Dates: start: 20121029, end: 20121108

REACTIONS (3)
  - Akathisia [Unknown]
  - Restlessness [Unknown]
  - Insomnia [Recovered/Resolved]
